FAERS Safety Report 7383300-5 (Version None)
Quarter: 2011Q1

REPORT INFORMATION
  Report Type: 
  Country: None (occurrence: None)
  Receive Date: 20110330
  Receipt Date: 20110316
  Transmission Date: 20110831
  Serious: Yes (Hospitalization, Disabling)
  Sender: FDA-Public Use
  Company Number: PHHY2010JP05882

PATIENT
  Sex: Male

DRUGS (17)
  1. AMN107 [Suspect]
     Dosage: 600 MG, DAILY
     Route: 048
     Dates: start: 20090810, end: 20091025
  2. AMN107 [Suspect]
     Dosage: 800 MG, DAILY
     Route: 048
     Dates: start: 20091026, end: 20091107
  3. WARFARIN [Concomitant]
     Dosage: 1.5 MG, UNK
     Route: 048
  4. LASIX [Concomitant]
     Dosage: 10 MG, UNK
     Route: 048
  5. EPLERENONE [Concomitant]
     Indication: HYPERTENSION
     Dosage: 25 MG, UNK
     Route: 048
     Dates: start: 20090331, end: 20100430
  6. NU-LOTAN [Concomitant]
     Dosage: 2.5 MG, UNK
     Route: 048
  7. BEZATOL - SLOW RELEASE [Concomitant]
     Dosage: 400 MG, UNK
     Route: 048
  8. FOLIAMIN [Concomitant]
     Dosage: 2 DF, UNK
     Route: 048
     Dates: start: 20100506, end: 20100610
  9. CALONAL [Concomitant]
     Dosage: 500 MG, UNK
     Route: 048
     Dates: start: 20100428
  10. AMN107 [Suspect]
     Dosage: 600 MG, DAILY
     Route: 048
     Dates: start: 20100223
  11. WARFARIN [Concomitant]
     Dosage: 2 MG DAILY
     Dates: start: 20090915
  12. NORVASC [Concomitant]
     Dosage: 7.5 MG, UNK
     Route: 048
  13. AMN107 [Suspect]
     Dosage: 400 MG, DAILY
     Route: 048
     Dates: start: 20091110, end: 20100222
  14. ZYLORIC [Concomitant]
     Dosage: 1 DF, UNK
     Route: 048
  15. PENTAZOCINE LACTATE [Concomitant]
     Dosage: 25 MG, UNK
     Route: 048
     Dates: start: 20100506
  16. AMN107 [Suspect]
     Indication: CHRONIC MYELOID LEUKAEMIA
     Dosage: 400 MG, DAILY
     Route: 048
     Dates: start: 20090525, end: 20090809
  17. RIVOTRIL [Concomitant]
     Dosage: 0.5 MG, UNK
     Route: 048
     Dates: start: 20100515, end: 20100910

REACTIONS (11)
  - PROTHROMBIN TIME RATIO INCREASED [None]
  - MALAISE [None]
  - GAIT DISTURBANCE [None]
  - OEDEMA PERIPHERAL [None]
  - HYPOTHYROIDISM [None]
  - DYSCHEZIA [None]
  - GASTROINTESTINAL HAEMORRHAGE [None]
  - PAIN IN EXTREMITY [None]
  - MUSCULAR WEAKNESS [None]
  - MUSCLE SPASMS [None]
  - HYPOPHOSPHATAEMIA [None]
